FAERS Safety Report 9055766 (Version 1)
Quarter: 2013Q1

REPORT INFORMATION
  Report Type: Spontaneous
  Country: CH (occurrence: CH)
  Receive Date: 20130206
  Receipt Date: 20130206
  Transmission Date: 20140127
  Serious: Yes (Other)
  Sender: FDA-Public Use
  Company Number: CH-WATSON-2013-01423

PATIENT
  Age: 85 Year
  Sex: Female

DRUGS (2)
  1. BETAMETHASONE [Suspect]
     Indication: BACK PAIN
     Dosage: 20 MG, UNKNOWN
     Route: 030
  2. AMIODARONE [Concomitant]
     Indication: ISCHAEMIC CARDIOMYOPATHY
     Dosage: UNK, UNKNOWN
     Route: 065

REACTIONS (1)
  - Memory impairment [Unknown]
